FAERS Safety Report 5390278-2 (Version None)
Quarter: 2007Q3

REPORT INFORMATION
  Report Type: 
  Country: None (occurrence: None)
  Receive Date: 20070718
  Receipt Date: 20070706
  Transmission Date: 20080115
  Serious: Yes (Hospitalization)
  Sender: FDA-Public Use
  Company Number: HQWYE058222SEP06

PATIENT
  Age: 61 Year
  Sex: Female

DRUGS (16)
  1. EUPANTOL [Suspect]
     Route: 048
     Dates: start: 20050701
  2. ARIMIDEX [Suspect]
     Indication: BREAST CANCER
     Route: 048
     Dates: start: 20050721
  3. KETOPROFEN [Suspect]
     Dosage: 150 MG, FREQUENCY UNSPECIFIED
     Route: 048
     Dates: start: 20051101, end: 20051101
  4. PIROXICAM [Suspect]
     Dosage: 20 MG, FREQUENCY UNSPECIFIED
     Route: 048
     Dates: start: 20051101, end: 20051101
  5. FENOFIBRATE [Concomitant]
     Indication: HYPERCHOLESTEROLAEMIA
     Route: 048
  6. TAMOXIFEN CITRATE [Concomitant]
     Indication: BREAST CANCER
     Dosage: ^DF^
     Route: 048
     Dates: end: 20060721
  7. ABUFENE [Concomitant]
  8. LEVOTHYROXINE SODIUM [Concomitant]
     Dosage: ^DF^
     Route: 048
     Dates: start: 20050701
  9. DAFALGAN [Concomitant]
     Dosage: ^DF^
     Route: 048
     Dates: start: 20051101
  10. SPASFON [Concomitant]
  11. ARESTAL [Concomitant]
  12. ERCEFURYL [Concomitant]
  13. TIORFAN [Concomitant]
  14. LOPERAMIDE HCL [Concomitant]
  15. DICETEL [Concomitant]
  16. NEXEN [Suspect]
     Dosage: ^DF^
     Route: 048
     Dates: start: 20051101, end: 20051101

REACTIONS (2)
  - ARTHRALGIA [None]
  - COLITIS COLLAGENOUS [None]
